FAERS Safety Report 7770798-3 (Version None)
Quarter: 2011Q3

REPORT INFORMATION
  Report Type: 
  Country: None (occurrence: None)
  Receive Date: 20110922
  Receipt Date: 20101229
  Transmission Date: 20111222
  Serious: No
  Sender: FDA-Public Use
  Company Number: US-ASTRAZENECA-2010SE61369

PATIENT
  Sex: Female

DRUGS (2)
  1. SEROQUEL [Suspect]
     Indication: CRANIOCEREBRAL INJURY
     Route: 048
     Dates: start: 20101203, end: 20101201
  2. SEROQUEL [Suspect]
     Route: 048
     Dates: start: 20101201

REACTIONS (4)
  - THERAPEUTIC RESPONSE UNEXPECTED [None]
  - DRY MOUTH [None]
  - DIZZINESS POSTURAL [None]
  - OCULAR DISCOMFORT [None]
